FAERS Safety Report 8549477 (Version 4)
Quarter: 2012Q4

REPORT INFORMATION
  Report Type: Spontaneous
  Country: JP (occurrence: None)
  Receive Date: 20120430
  Receipt Date: 20120827
  Transmission Date: 20130627
  Serious: Yes (Other)
  Sender: FDA-Public Use
  Company Number: JP-2012-13605

PATIENT
  Age: 92 Year
  Sex: Female

DRUGS (5)
  1. SAMSCA [Suspect]
     Indication: FLUID RETENTION
     Dosage: 7.5 MG MILLIGRAM(S), GAM, ORAL
     Route: 048
     Dates: start: 20120119, end: 20120121
  2. ISOSORBIDE DINITRATE [Concomitant]
  3. ZOLPIDEM TARTRATE [Concomitant]
  4. LASIX [Concomitant]
  5. PIROLACTON (SPIRONOLACTONE) TABLET [Concomitant]

REACTIONS (5)
  - HEPATIC FUNCTION ABNORMAL [None]
  - HYPERNATRAEMIA [None]
  - ASPARTATE AMINOTRANSFERASE INCREASED [None]
  - ALANINE AMINOTRANSFERASE INCREASED [None]
  - DEHYDRATION [None]
